FAERS Safety Report 10150065 (Version 1)
Quarter: 2014Q2

REPORT INFORMATION
  Report Type: Spontaneous
  Country: US (occurrence: None)
  Receive Date: 20140501
  Receipt Date: 20140501
  Transmission Date: 20141212
  Serious: Yes (Hospitalization)
  Sender: FDA-Public Use
  Company Number: None

PATIENT
  Age: 48 Year
  Sex: Female

DRUGS (9)
  1. ENOXAPARIN [Suspect]
     Indication: DEEP VEIN THROMBOSIS
     Route: 058
     Dates: start: 20131106, end: 20131120
  2. LORAZEPAM [Concomitant]
  3. INSULIN LISPRO [Concomitant]
  4. LOSARTAN [Concomitant]
  5. METOPROLOL TARTRATE [Concomitant]
  6. GABAPENTIN [Concomitant]
  7. PROMETHAZINE [Concomitant]
  8. OMEPRAZOLE [Concomitant]
  9. ONDANSETRON [Concomitant]

REACTIONS (2)
  - Pain in extremity [None]
  - Deep vein thrombosis [None]
